FAERS Safety Report 13757445 (Version 1)
Quarter: 2017Q3

REPORT INFORMATION
  Report Type: Spontaneous
  Country: CN (occurrence: CN)
  Receive Date: 20170716
  Receipt Date: 20170716
  Transmission Date: 20171127
  Serious: Yes (Other)
  Sender: FDA-Public Use
  Company Number: CN-ROCHE-1958499

PATIENT
  Age: 6 Year
  Sex: Female
  Weight: 27 kg

DRUGS (2)
  1. SODIUM CHLORIDE. [Concomitant]
     Active Substance: SODIUM CHLORIDE
     Route: 041
     Dates: start: 20170312, end: 20170315
  2. ROCEPHIN [Suspect]
     Active Substance: CEFTRIAXONE SODIUM
     Indication: BRONCHITIS
     Route: 041
     Dates: start: 20170312, end: 20170315

REACTIONS (6)
  - Skin discolouration [Recovering/Resolving]
  - Palpitations [Recovering/Resolving]
  - Dysphoria [Recovering/Resolving]
  - Confusional state [Unknown]
  - Body temperature decreased [Unknown]
  - Urine analysis abnormal [Not Recovered/Not Resolved]

NARRATIVE: CASE EVENT DATE: 20170314
